FAERS Safety Report 13096073 (Version 1)
Quarter: 2017Q1

REPORT INFORMATION
  Report Type: Other
  Country: IT (occurrence: IT)
  Receive Date: 20170109
  Receipt Date: 20170109
  Transmission Date: 20170428
  Serious: Yes (Life-Threatening, Hospitalization, Other)
  Sender: FDA-Public Use
  Company Number: IT-MACLEODS PHARMACEUTICALS US LTD-MAC2016004153

PATIENT

DRUGS (3)
  1. CLOPIDOGREL [Suspect]
     Active Substance: CLOPIDOGREL BISULFATE
     Indication: ANTICOAGULANT THERAPY
     Dosage: UNK
     Route: 065
  2. CLOPIDOGREL [Suspect]
     Active Substance: CLOPIDOGREL BISULFATE
     Indication: ANTIPLATELET THERAPY
  3. ASPIRIN. [Suspect]
     Active Substance: ASPIRIN
     Indication: ANTICOAGULANT THERAPY
     Dosage: UNK
     Route: 065

REACTIONS (9)
  - Cardiac arrest [Recovered/Resolved]
  - Coronary ostial stenosis [Recovered/Resolved]
  - Gastric ulcer [Recovered/Resolved]
  - Drug ineffective [Unknown]
  - Arteriosclerosis coronary artery [Recovered/Resolved]
  - Angina pectoris [Recovered/Resolved]
  - Melaena [Unknown]
  - Anaemia [Unknown]
  - Ventricular tachycardia [Recovered/Resolved]
